FAERS Safety Report 5011054-6 (Version None)
Quarter: 2006Q2

REPORT INFORMATION
  Report Type: 
  Country: None (occurrence: None)
  Receive Date: 20060523
  Receipt Date: 20060510
  Transmission Date: 20061013
  Serious: Yes (Hospitalization)
  Sender: FDA-Public Use
  Company Number: GXKR2006JP02524

PATIENT
  Age: 31 Year
  Sex: Male
  Weight: 45 kg

DRUGS (5)
  1. RIFAMPICIN [Suspect]
     Indication: TUBERCULOSIS
     Dosage: 450 MG, ORAL
     Route: 048
  2. ISONIAZID [Suspect]
     Indication: TUBERCULOSIS
     Dosage: 400 MG, INTRAVENOUS
     Route: 042
  3. PYRAZINAMIDE [Suspect]
     Indication: TUBERCULOSIS
     Dosage: 1.2 G, INTRAVENOUS
     Route: 042
  4. STREPTOMYCIN [Suspect]
     Indication: TUBERCULOSIS
     Dosage: 750 MG, ORAL
     Route: 048
  5. LEVOFLOXACIN [Concomitant]

REACTIONS (9)
  - DRUG HYPERSENSITIVITY [None]
  - DUODENAL ULCER [None]
  - ECCHYMOSIS [None]
  - HAEMATEMESIS [None]
  - ILEUS [None]
  - JAUNDICE [None]
  - MELAENA [None]
  - RASH [None]
  - VOMITING [None]
